FAERS Safety Report 21760839 (Version 1)
Quarter: 2022Q4

REPORT INFORMATION
  Report Type: Spontaneous
  Country: US (occurrence: None)
  Receive Date: 20221220
  Receipt Date: 20221220
  Transmission Date: 20230112
  Serious: Yes (Hospitalization)
  Sender: FDA-Public Use
  Company Number: None

PATIENT
  Sex: Female

DRUGS (2)
  1. VELETRI [Suspect]
     Active Substance: EPOPROSTENOL
     Dosage: OTHER QUANTITY : 20 NG/KG/MIN?OTHER FREQUENCY : CONTINUOUS?
     Route: 042
     Dates: start: 20220803
  2. DEVICE [Concomitant]
     Active Substance: DEVICE
     Dates: start: 20220803

REACTIONS (7)
  - Dyspnoea [None]
  - Syncope [None]
  - Stress [None]
  - Pain [None]
  - Device infusion issue [None]
  - Presyncope [None]
  - Loss of consciousness [None]
